FAERS Safety Report 5386461-2 (Version None)
Quarter: 2007Q3

REPORT INFORMATION
  Report Type: 
  Country: None (occurrence: None)
  Receive Date: 20070713
  Receipt Date: 20070710
  Transmission Date: 20080115
  Serious: Yes (Other)
  Sender: FDA-Public Use
  Company Number: US-ASTRAZENECA-2007UW16153

PATIENT
  Sex: Female

DRUGS (5)
  1. SEROQUEL [Suspect]
     Indication: BIPOLAR DISORDER
     Route: 048
     Dates: end: 20010101
  2. SEROQUEL [Suspect]
     Indication: ANXIETY
     Route: 048
     Dates: end: 20010101
  3. AMBIEN [Concomitant]
  4. XANAX [Concomitant]
  5. PERCOCET [Concomitant]

REACTIONS (5)
  - AMNESIA [None]
  - CONVULSION [None]
  - DYSPHEMIA [None]
  - LOSS OF CONSCIOUSNESS [None]
  - VISUAL DISTURBANCE [None]
